FAERS Safety Report 4290336-X (Version None)
Quarter: 2004Q1

REPORT INFORMATION
  Report Type: 
  Country: None (occurrence: None)
  Receive Date: 20040209
  Receipt Date: 20040127
  Transmission Date: 20041129
  Serious: Yes (Death)
  Sender: FDA-Public Use
  Company Number: 163-20785-03100383

PATIENT
  Age: 75 Year
  Sex: Female

DRUGS (7)
  1. THALOMID [Suspect]
     Indication: LEIOMYOSARCOMA METASTATIC
     Dosage: 100 MG, DAILY, ORAL
     Route: 048
     Dates: start: 20030313, end: 20030422
  2. CHOLINE MAGNESIUM TRISALICYLATE (CHOLINE MAGNESIUM TRISALICYLATE) [Concomitant]
  3. METOPROLOL SUCCINATE [Concomitant]
  4. DEXAMETHASONE [Concomitant]
  5. FAMOTIDINE [Concomitant]
  6. SENNA (SENNA) [Concomitant]
  7. VICODIN [Concomitant]

REACTIONS (5)
  - BLISTER [None]
  - ERYTHEMA [None]
  - HYPERSENSITIVITY [None]
  - OEDEMA PERIPHERAL [None]
  - PHOTOSENSITIVITY REACTION [None]
